FAERS Safety Report 4422674-1 (Version None)
Quarter: 2004Q3

REPORT INFORMATION
  Report Type: 
  Country: None (occurrence: None)
  Receive Date: 20040713
  Receipt Date: 20030404
  Transmission Date: 20050211
  Serious: No
  Sender: FDA-Public Use
  Company Number: PHEH2003US02921

PATIENT
  Sex: Male

DRUGS (2)
  1. ELIDEL [Suspect]
     Indication: ROSACEA
     Dosage: QD, TOPICAL
     Route: 061
     Dates: start: 20030201, end: 20030403
  2. ETHANOL (ETHANOL) [Suspect]
     Dosage: ORAL
     Route: 048

REACTIONS (2)
  - APPLICATION SITE ERYTHEMA [None]
  - APPLICATION SITE WARMTH [None]
